FAERS Safety Report 7372847-3 (Version None)
Quarter: 2011Q1

REPORT INFORMATION
  Report Type: 
  Country: None (occurrence: None)
  Receive Date: 20110324
  Receipt Date: 20110321
  Transmission Date: 20110831
  Serious: Yes (Disabling)
  Sender: FDA-Public Use
  Company Number: ES-PFIZER INC-2010095799

PATIENT
  Age: 69 Year
  Sex: Male

DRUGS (6)
  1. TRAZODONE HCL [Suspect]
     Dosage: 100 MG, EVERY DAY
     Route: 048
     Dates: end: 20100306
  2. ALDACTONE [Suspect]
     Dosage: 150 MG, EVERY DAY
     Route: 048
     Dates: start: 20100216, end: 20100306
  3. LACTULOSE [Suspect]
     Indication: CHRONIC HEPATITIS
     Dosage: 30 ML, EVERY DAY
     Route: 048
  4. SEGURIL [Suspect]
     Dosage: 40 MG, EVERY DAY
     Route: 048
     Dates: start: 20100216, end: 20100306
  5. OMEPRAZOLE [Concomitant]
  6. LANTANON [Suspect]
     Dosage: 10 MG, EVERY DAY
     Route: 048
     Dates: start: 20100205, end: 20100306

REACTIONS (1)
  - HEPATIC ENCEPHALOPATHY [None]
